FAERS Safety Report 4436534-3 (Version None)
Quarter: 2004Q3

REPORT INFORMATION
  Report Type: 
  Country: None (occurrence: None)
  Receive Date: 20040830
  Receipt Date: 20040614
  Transmission Date: 20050211
  Serious: No
  Sender: FDA-Public Use
  Company Number: US-BRISTOL-MYERS SQUIBB COMPANY-12615035

PATIENT
  Age: 64 Year
  Sex: Male
  Weight: 139 kg

DRUGS (5)
  1. ABILIFY [Suspect]
     Indication: SCHIZOAFFECTIVE DISORDER
     Dosage: DECREASED TO 10 MG/DAY, THEN DISCONTINUED
     Route: 048
  2. TOPAMAX [Concomitant]
  3. LASIX [Concomitant]
  4. POTASSIUM [Concomitant]
  5. SEROQUEL [Concomitant]

REACTIONS (3)
  - AGITATION [None]
  - INCREASED APPETITE [None]
  - WEIGHT INCREASED [None]
